FAERS Safety Report 24698452 (Version 2)
Quarter: 2024Q4

REPORT INFORMATION
  Report Type: Spontaneous
  Country: US (occurrence: US)
  Receive Date: 20241204
  Receipt Date: 20241219
  Transmission Date: 20250114
  Serious: No
  Sender: BAUSCH AND LOMB
  Company Number: US-BAUSCHBL-2024BNL038162

PATIENT
  Age: 71 Year
  Sex: Female
  Weight: 59.9 kg

DRUGS (7)
  1. MIEBO [Suspect]
     Active Substance: PERFLUOROHEXYLOCTANE
     Indication: Dry eye
     Route: 047
     Dates: start: 20240507, end: 20240509
  2. MIEBO [Suspect]
     Active Substance: PERFLUOROHEXYLOCTANE
     Indication: Meibomian gland dysfunction
  3. MIEBO [Suspect]
     Active Substance: PERFLUOROHEXYLOCTANE
     Indication: Psychotic disorder
  4. MIEBO [Suspect]
     Active Substance: PERFLUOROHEXYLOCTANE
     Indication: Vision blurred
  5. VITAMIN D3 GUMMY [Concomitant]
     Indication: Product used for unknown indication
     Dosage: 1/DAY 1,000 IU
     Route: 065
  6. COBAMAMIDE [Concomitant]
     Active Substance: COBAMAMIDE
     Indication: Product used for unknown indication
     Dosage: 1,000 MCG
     Route: 065
  7. IMVEXXY [Concomitant]
     Active Substance: ESTRADIOL
     Indication: Product used for unknown indication
     Dosage: 4 MCG 1 SUPPOSITORY PER MONTH W/SMALL AMOUNT OF ESTRADIOL VAG. CREAM 0.01%
     Route: 065

REACTIONS (5)
  - Headache [Recovered/Resolved]
  - Visual impairment [Recovered/Resolved]
  - Adverse reaction [Recovered/Resolved]
  - Intentional product use issue [Unknown]
  - Loss of personal independence in daily activities [Unknown]

NARRATIVE: CASE EVENT DATE: 20240501
